FAERS Safety Report 5311064-5 (Version None)
Quarter: 2007Q2

REPORT INFORMATION
  Report Type: 
  Country: None (occurrence: None)
  Receive Date: 20070423
  Receipt Date: 20070409
  Transmission Date: 20071010
  Serious: Yes (Death)
  Sender: FDA-Public Use
  Company Number: A-CH2007-14496

PATIENT
  Age: 26 Year
  Sex: Female

DRUGS (2)
  1. TRACLEER [Suspect]
     Indication: PULMONARY HYPERTENSION
     Dosage: SEE IMAGE
     Dates: start: 20051026, end: 20051125
  2. TRACLEER [Suspect]
     Indication: PULMONARY HYPERTENSION
     Dosage: SEE IMAGE
     Dates: start: 20051126, end: 20070217

REACTIONS (4)
  - DISEASE PROGRESSION [None]
  - PNEUMONIA [None]
  - PULMONARY HYPERTENSION [None]
  - SEPTIC SHOCK [None]
